FAERS Safety Report 7018525-1 (Version None)
Quarter: 2010Q3

REPORT INFORMATION
  Report Type: 
  Country: None (occurrence: None)
  Receive Date: 20100928
  Receipt Date: 20100921
  Transmission Date: 20110219
  Serious: Yes (Other)
  Sender: FDA-Public Use
  Company Number: US-AMGEN-KDL436175

PATIENT
  Sex: Male

DRUGS (6)
  1. ENBREL [Suspect]
     Indication: PSORIASIS
     Dates: start: 20070101
  2. LISINOPRIL [Concomitant]
  3. SIMVASTATIN [Concomitant]
  4. CELEXA [Concomitant]
  5. ASPIRIN [Concomitant]
  6. VITAMINS [Concomitant]

REACTIONS (4)
  - DISSOCIATION [None]
  - DRUG SCREEN POSITIVE [None]
  - PERINEURIAL CYST [None]
  - POST-TRAUMATIC STRESS DISORDER [None]
